FAERS Safety Report 13272895 (Version 1)
Quarter: 2017Q1

REPORT INFORMATION
  Report Type: Spontaneous
  Country: GB (occurrence: GB)
  Receive Date: 20170227
  Receipt Date: 20170227
  Transmission Date: 20170428
  Serious: Yes (Other)
  Sender: FDA-Public Use
  Company Number: GB-TEVA-742752ACC

PATIENT
  Age: 70 Year
  Sex: Female
  Weight: 85.72 kg

DRUGS (8)
  1. OCUVITE [Concomitant]
     Active Substance: VITAMINS
  2. CETIRIZINE [Concomitant]
     Active Substance: CETIRIZINE HYDROCHLORIDE
  3. LEVOTHYROXINE. [Concomitant]
     Active Substance: LEVOTHYROXINE
  4. ACTAVIS UK TRIMETHOPRIM [Suspect]
     Active Substance: TRIMETHOPRIM
     Indication: URINARY TRACT INFECTION
     Route: 048
     Dates: start: 20161215, end: 20161215
  5. ACTAVIS UK RANITIDINE [Concomitant]
  6. VITAMIN D [Concomitant]
     Active Substance: CHOLECALCIFEROL
  7. EVENING PRIMROSE OIL [Concomitant]
     Active Substance: EVENING PRIMROSE OIL
  8. VAGIFEM [Concomitant]
     Active Substance: ESTRADIOL

REACTIONS (10)
  - Pain in extremity [Not Recovered/Not Resolved]
  - Photophobia [Recovering/Resolving]
  - Headache [Recovered/Resolved]
  - Dry eye [Recovering/Resolving]
  - Nausea [Recovered/Resolved]
  - Decreased appetite [Recovering/Resolving]
  - Eye pain [Recovering/Resolving]
  - Pyrexia [Recovered/Resolved]
  - Thirst [Recovering/Resolving]
  - Musculoskeletal stiffness [Recovering/Resolving]

NARRATIVE: CASE EVENT DATE: 20161215
